FAERS Safety Report 9036816 (Version 1)
Quarter: 2012Q4

REPORT INFORMATION
  Report Type: Spontaneous
  Country: US (occurrence: None)
  Receive Date: 20121217
  Receipt Date: 20121217
  Transmission Date: 20130627
  Serious: No
  Sender: FDA-Public Use
  Company Number: 2012034227

PATIENT
  Age: 78 Year
  Sex: Female
  Weight: 68.95 kg

DRUGS (23)
  1. HIZENTRA (IMMUNOGLOBULIN HUMAN NORMAL) [Suspect]
     Dosage: 1x/week, on 2-3 sites, subcutaneous
     Route: 058
     Dates: start: 20121122, end: 20121122
  2. HIZENTRA (IMMUNOGLOBULIN HUMAN NORMAL) [Suspect]
     Dosage: 8 g 1x/week, on 2-3 sites, subcutaneous
     Route: 058
     Dates: start: 20121111, end: 20121111
  3. RITALIN DR (METHYLPHENIDATE HYDROCHLORIDE) [Concomitant]
  4. GARLIC (ALLIUM STATIVUM) [Concomitant]
  5. ALEVE (NAPROXEN SODIUM) [Concomitant]
  6. DILTIAZEM ER (DILTIAZEM HYDROCHLORIDE) [Concomitant]
  7. LEVOTHYROXINE (LEVOTHYROXINE) [Concomitant]
  8. VITAMIN D (ERGOCALCIFEROL) [Concomitant]
  9. VITAMIN D (ERGOCALCIFEROL) [Concomitant]
  10. FISH OIL (FISH OIL) [Concomitant]
  11. DIPHENHYDRAMINE (DIPHENHYDRAMINE [Concomitant]
  12. EPINEPHRINE (EPINEPHRINE) [Concomitant]
  13. LIDOCAINE/PRILOCAINE (EMLA) [Concomitant]
  14. ASPIRIN (ACETYLSALICYLIC ACID) [Concomitant]
  15. COLACE (DOCUSATE SODIUM) [Concomitant]
  16. OMEPRAZOLE (OMEPRAZOLE) [Concomitant]
  17. ACIDOPHILUS (LACTOBACILLUS ACIDOPHILUS) [Concomitant]
  18. GUAIFENESIN (GUAIFENESIN) [Concomitant]
  19. CYCLOBENZAPRINE (CYCLOBENZAPRINE) [Concomitant]
  20. CELEXA (CITALOPRAM HYDROBROMIDE) [Concomitant]
  21. MIRALAX (MACROGOL) [Concomitant]
  22. KONSYL (PSYLLIUM HYDROPHILIC MUCILLOID) [Concomitant]
  23. CRESTOR (ROSUVASTATIN) [Concomitant]

REACTIONS (1)
  - Renal impairment [None]
